FAERS Safety Report 21420372 (Version 3)
Quarter: 2022Q4

REPORT INFORMATION
  Report Type: Other
  Country: US (occurrence: None)
  Receive Date: 20221007
  Receipt Date: 20221019
  Transmission Date: 20230112
  Serious: No
  Sender: FDA-Public Use
  Company Number: US-ROCHE-3145061

PATIENT
  Age: 26 Year
  Sex: Female
  Weight: 68.100 kg

DRUGS (13)
  1. OCREVUS [Suspect]
     Active Substance: OCRELIZUMAB
     Indication: Relapsing-remitting multiple sclerosis
     Dosage: YES; SUBSEQUENTLY 1 FOR EVERY 6 MONTHS; DATE OF TREATMENT ADDED: 16/AUG/2022, 30/NOV/2021, 16/NOV/20
     Route: 042
     Dates: start: 20211116
  2. ALBUTEROL [Concomitant]
     Active Substance: ALBUTEROL
  3. GABAPENTIN [Concomitant]
     Active Substance: GABAPENTIN
  4. SERTRALINE [Concomitant]
     Active Substance: SERTRALINE HYDROCHLORIDE
  5. OMEGA 3 [Concomitant]
     Active Substance: CAPSAICIN
     Route: 048
  6. SPRINTEC [Concomitant]
     Active Substance: ETHINYL ESTRADIOL\NORGESTIMATE
     Route: 048
  7. CRANBERRY [Concomitant]
     Active Substance: CRANBERRY
     Route: 048
  8. DULOXETINE [Concomitant]
     Active Substance: DULOXETINE
     Route: 048
  9. SINGULAIR [Concomitant]
     Active Substance: MONTELUKAST SODIUM
     Route: 048
  10. ZYRTEC [Concomitant]
     Active Substance: CETIRIZINE HYDROCHLORIDE
     Route: 048
     Dates: start: 2022
  11. SYMBICORT [Concomitant]
     Active Substance: BUDESONIDE\FORMOTEROL FUMARATE DIHYDRATE
     Route: 055
  12. AZELASTINE [Concomitant]
     Active Substance: AZELASTINE
     Route: 045
  13. FLONASE [Concomitant]
     Active Substance: FLUTICASONE PROPIONATE
     Route: 045

REACTIONS (6)
  - Urinary tract infection [Recovered/Resolved]
  - Heart rate increased [Recovered/Resolved]
  - Hypersensitivity [Not Recovered/Not Resolved]
  - Fall [Unknown]
  - Fungal infection [Not Recovered/Not Resolved]
  - Anxiety [Not Recovered/Not Resolved]

NARRATIVE: CASE EVENT DATE: 20220101
